FAERS Safety Report 5719485-3 (Version None)
Quarter: 2008Q2

REPORT INFORMATION
  Report Type: 
  Country: None (occurrence: None)
  Receive Date: 20080428
  Receipt Date: 20080428
  Transmission Date: 20081010
  Serious: Yes (Death)
  Sender: FDA-Public Use
  Company Number: None

PATIENT
  Age: 62 Year
  Sex: Male
  Weight: 127.0072 kg

DRUGS (1)
  1. HEPARIN [Suspect]
     Indication: DIALYSIS
     Dosage: HEMODIALYSI
     Route: 010
     Dates: start: 20080222, end: 20080312

REACTIONS (4)
  - DIALYSIS DEVICE COMPLICATION [None]
  - DRUG HYPERSENSITIVITY [None]
  - HYPOTENSION [None]
  - RASH [None]
